FAERS Safety Report 23230142 (Version 1)
Quarter: 2023Q4

REPORT INFORMATION
  Report Type: Spontaneous
  Country: US (occurrence: None)
  Receive Date: 20231122
  Receipt Date: 20231122
  Transmission Date: 20240109
  Serious: Yes (Hospitalization)
  Sender: FDA-Public Use
  Company Number: None

PATIENT
  Age: 50 Year
  Sex: Male
  Weight: 135 kg

DRUGS (16)
  1. STIVARGA [Suspect]
     Active Substance: REGORAFENIB
     Indication: Gastrointestinal stromal tumour
     Dosage: FREQUENCY : 4 TIMES A DAY;?
     Route: 048
     Dates: start: 20231118, end: 20231120
  2. Aripiprazole 15 mg tab (1 tab PO QD) [Concomitant]
     Dates: start: 20230303
  3. Colestipol 1 g tab (5 tabs PO BID) [Concomitant]
     Dates: start: 20230717
  4. Dicyclomine 10 mg cap (1 cap PO QID prn abdominal cramps) [Concomitant]
     Dates: start: 20231121
  5. Depakote 250 mg DR tab (1 tab PO QHS) [Concomitant]
     Dates: start: 20221030
  6. Depakote ER 500 mg tab (3 tabs PO QHS) [Concomitant]
     Dates: start: 20190101
  7. Flonase 50 mcg/act nasal spray (2 sprays into both nostrils QD PRN) [Concomitant]
     Dates: start: 20200320
  8. HCTZ 25 mg tab (1 tab PO QD) [Concomitant]
     Dates: start: 20231009
  9. Loperamide 2 mg tab (2 tabs PO QD PRN for diarrhea) [Concomitant]
  10. Losartan 100 mg tab (1 tab QD) [Concomitant]
     Dates: start: 20230410
  11. Concerta 36 mg CR tab (2 tabs PO QAM) [Concomitant]
     Dates: start: 20231030
  12. Protonix 40 mg EC tab (1 tab PO QD) [Concomitant]
     Dates: start: 20230727
  13. Depotestosterone 200 mg/mL injection (200 mg injection qw on sat) [Concomitant]
     Dates: start: 20221017
  14. Trazodone 50 mg tab (1 to 3 tabs PO PRN depression) [Concomitant]
     Dates: start: 20220613
  15. Vitamin B complext tablet (1 tab PO QD prn) [Concomitant]
  16. Vitamin D 25 mcg (1,000 units) tab (1 tab PO QD) [Concomitant]

REACTIONS (2)
  - Feeling abnormal [None]
  - Abdominal pain [None]

NARRATIVE: CASE EVENT DATE: 20231121
